FAERS Safety Report 9524525 (Version 3)
Quarter: 2014Q1

REPORT INFORMATION
  Report Type: Spontaneous
  Country: US (occurrence: US)
  Receive Date: 20130916
  Receipt Date: 20140306
  Transmission Date: 20141002
  Serious: No
  Sender: FDA-Public Use
  Company Number: US-PFIZER INC-2013260074

PATIENT
  Age: 75 Year
  Sex: Female

DRUGS (16)
  1. XANAX [Suspect]
     Dosage: UNK
  2. ALPRAZOLAM [Suspect]
     Dosage: UNK
  3. AMLODIPINE BESILATE [Suspect]
     Dosage: UNK
  4. BENICAR [Suspect]
     Dosage: UNK
  5. LISINOPRIL [Suspect]
     Dosage: UNK
  6. HYDROCHLOROTHIAZIDE [Suspect]
     Dosage: UNK
  7. SPIRONOLACTONE [Suspect]
     Dosage: UNK
  8. TETRACYCLINE HCL [Suspect]
     Dosage: UNK
  9. DILANTIN [Suspect]
     Dosage: UNK
  10. ATARAX [Suspect]
     Dosage: UNK
  11. TOPAMAX [Suspect]
     Dosage: UNK
  12. EXFORGE [Suspect]
     Dosage: UNK
  13. UNIVASC [Suspect]
     Dosage: UNK
  14. CELEXA [Suspect]
     Dosage: UNK
  15. CIPRO [Suspect]
     Dosage: UNK
  16. BACTRIM [Suspect]
     Dosage: UNK

REACTIONS (1)
  - Drug hypersensitivity [Unknown]
